FAERS Safety Report 23548072 (Version 3)
Quarter: 2024Q2

REPORT INFORMATION
  Report Type: Report from Study
  Country: CA (occurrence: None)
  Receive Date: 20240221
  Receipt Date: 20240620
  Transmission Date: 20240716
  Serious: Yes (Other)
  Sender: FDA-Public Use
  Company Number: CA-PFIZER INC-2019469259

PATIENT
  Age: 37 Year
  Sex: Female

DRUGS (25)
  1. METHOTREXATE [Suspect]
     Active Substance: METHOTREXATE
     Indication: Product used for unknown indication
  2. METHOTREXATE [Suspect]
     Active Substance: METHOTREXATE
  3. METHOTREXATE [Suspect]
     Active Substance: METHOTREXATE
  4. METHOTREXATE [Suspect]
     Active Substance: METHOTREXATE
  5. COSENTYX [Suspect]
     Active Substance: SECUKINUMAB
     Indication: Psoriatic arthropathy
  6. COSENTYX [Suspect]
     Active Substance: SECUKINUMAB
  7. COSENTYX [Suspect]
     Active Substance: SECUKINUMAB
  8. COSENTYX [Suspect]
     Active Substance: SECUKINUMAB
  9. ENBREL [Concomitant]
     Active Substance: BENZYL ALCOHOL\ETANERCEPT
  10. ENBREL [Concomitant]
     Active Substance: BENZYL ALCOHOL\ETANERCEPT
  11. FERROUS GLUCONATE [Concomitant]
     Active Substance: FERROUS GLUCONATE
  12. HUMIRA [Concomitant]
     Active Substance: ADALIMUMAB
  13. HUMIRA [Concomitant]
     Active Substance: ADALIMUMAB
  14. HYDROCORTISONE [Concomitant]
     Active Substance: HYDROCORTISONE\HYDROCORTISONE ACETATE
  15. NAPROXEN [Concomitant]
     Active Substance: NAPROXEN
  16. PREDNISONE [Concomitant]
     Active Substance: PREDNISONE
  17. PREDNISONE [Concomitant]
     Active Substance: PREDNISONE
  18. PREDNISONE [Concomitant]
     Active Substance: PREDNISONE
  19. SIMPONI [Concomitant]
     Active Substance: GOLIMUMAB
  20. SIMPONI [Concomitant]
     Active Substance: GOLIMUMAB
  21. SULFASALAZINE [Concomitant]
     Active Substance: SULFASALAZINE
  22. AZATHIOPRINE [Concomitant]
     Active Substance: AZATHIOPRINE
  23. LEFLUNOMIDE [Concomitant]
     Active Substance: LEFLUNOMIDE
  24. TYLENOL [Concomitant]
     Active Substance: ACETAMINOPHEN
  25. HYDROXYCHLOROQUINE [Concomitant]
     Active Substance: HYDROXYCHLOROQUINE

REACTIONS (7)
  - Drug ineffective [Unknown]
  - Arthritis [Unknown]
  - Pain [Unknown]
  - Polyarthritis [Unknown]
  - Psoriatic arthropathy [Unknown]
  - Weight increased [Unknown]
  - Product use issue [Unknown]
